FAERS Safety Report 7419552-2 (Version None)
Quarter: 2011Q1

REPORT INFORMATION
  Report Type: 
  Country: None (occurrence: None)
  Receive Date: 20110302
  Receipt Date: 20110113
  Transmission Date: 20110831
  Serious: No
  Sender: FDA-Public Use
  Company Number: 021620

PATIENT
  Sex: Female
  Weight: 68 kg

DRUGS (10)
  1. SYNTHROID [Concomitant]
  2. LISINOPRIL [Concomitant]
  3. SIMVASTATIN [Concomitant]
  4. CIMZIA [Suspect]
     Indication: CROHN'S DISEASE
     Dosage: 400 MG 1X/2 WEEKS SUBCUTANEOUS
     Route: 058
     Dates: start: 20101021
  5. MELOXICAM [Concomitant]
  6. RANITIDINE [Concomitant]
  7. SERTRALINE [Concomitant]
  8. AMITRIPTYLINE [Concomitant]
  9. ALPRAZOLAM [Concomitant]
  10. TRIAMTERENE [Concomitant]

REACTIONS (4)
  - PRURITUS [None]
  - SINUSITIS [None]
  - EYE SWELLING [None]
  - RASH [None]
